FAERS Safety Report 13178815 (Version 1)
Quarter: 2017Q1

REPORT INFORMATION
  Report Type: Spontaneous
  Country: US (occurrence: US)
  Receive Date: 20170202
  Receipt Date: 20170202
  Transmission Date: 20170428
  Serious: Yes (Death)
  Sender: FDA-Public Use
  Company Number: None

PATIENT
  Age: 66 Year
  Sex: Male

DRUGS (7)
  1. ALECENSA [Suspect]
     Active Substance: ALECTINIB HYDROCHLORIDE
     Indication: LUNG NEOPLASM MALIGNANT
     Route: 048
     Dates: start: 20160901
  2. STOOL SOFTENER (DOCUSATE SODIUM) [Concomitant]
     Active Substance: DOCUSATE SODIUM
  3. CARAFATE [Concomitant]
     Active Substance: SUCRALFATE
  4. OZURDEX [Concomitant]
     Active Substance: DEXAMETHASONE
  5. OXYCODONE [Concomitant]
     Active Substance: OXYCODONE
  6. CALCIUM [Concomitant]
     Active Substance: CALCIUM
  7. MACROBID [Concomitant]
     Active Substance: NITROFURANTOIN\NITROFURANTOIN MONOHYDRATE

REACTIONS (1)
  - Death [None]

NARRATIVE: CASE EVENT DATE: 20170108
